FAERS Safety Report 8371760-2 (Version None)
Quarter: 2012Q2

REPORT INFORMATION
  Report Type: 
  Country: None (occurrence: None)
  Receive Date: 20120518
  Receipt Date: 20120509
  Transmission Date: 20120825
  Serious: Yes (Hospitalization)
  Sender: FDA-Public Use
  Company Number: NL-BAXTER-2012BAX005522

PATIENT
  Age: 83 Year
  Sex: Female

DRUGS (4)
  1. EXTRANEAL [Suspect]
     Route: 033
     Dates: start: 20100217
  2. PHYSIONEAL 40 GLUCOSE 1.36% W/V / 13.6 MG/ML [Suspect]
     Route: 033
     Dates: start: 20100217
  3. VITAMIN D                          /00318501/ [Concomitant]
     Route: 065
  4. NUTRINEAL [Suspect]
     Route: 033
     Dates: start: 20100217

REACTIONS (1)
  - FLUID RETENTION [None]
